FAERS Safety Report 24262866 (Version 1)
Quarter: 2024Q3

REPORT INFORMATION
  Report Type: Spontaneous
  Country: CA (occurrence: CA)
  Receive Date: 20240829
  Receipt Date: 20240829
  Transmission Date: 20241017
  Serious: Yes (Life-Threatening, Hospitalization)
  Sender: BAXTER
  Company Number: CA-BAXTER-2024BAX023571

PATIENT
  Age: 8 Year
  Sex: Female

DRUGS (3)
  1. CYCLOPHOSPHAMIDE [Suspect]
     Active Substance: CYCLOPHOSPHAMIDE
     Indication: Rhabdoid tumour
     Dosage: 414.0 MILLIGRAM,1 EVERY 1 DAYS (DOSAGE FORM: POWDER FOR SOLUTION INTRAVENOUS)
     Route: 042
  2. ETOPOSIDE [Suspect]
     Active Substance: ETOPOSIDE
     Indication: Rhabdoid tumour
     Dosage: 94.0 MILLIGRAM,1 EVERY 1 DAYS (DOSAGE FORM: LIQUID INTRAVENOUS)
     Route: 042
  3. CARBOPLATIN [Suspect]
     Active Substance: CARBOPLATIN
     Dosage: UNK (DOSAGE FORM: SOLUTION INTRAVENOUS)
     Route: 065

REACTIONS (6)
  - Atelectasis [Recovered/Resolved]
  - Herpes simplex test positive [Recovered/Resolved]
  - Lung consolidation [Recovered/Resolved]
  - SARS-CoV-2 test positive [Recovered/Resolved]
  - Febrile neutropenia [Recovered/Resolved]
  - Mucosal inflammation [Recovered/Resolved]
